FAERS Safety Report 11184206 (Version 1)
Quarter: 2015Q2

REPORT INFORMATION
  Report Type: Spontaneous
  Country: US (occurrence: US)
  Receive Date: 20150612
  Receipt Date: 20150612
  Transmission Date: 20150821
  Serious: No
  Sender: FDA-Public Use
  Company Number: US-PFIZER INC-2015193798

PATIENT
  Age: 66 Year
  Sex: Male
  Weight: 122 kg

DRUGS (1)
  1. VIAGRA [Suspect]
     Active Substance: SILDENAFIL CITRATE
     Dosage: 3 TABLETS

REACTIONS (5)
  - Anal pruritus [Unknown]
  - Haemorrhoids [Unknown]
  - Intentional product misuse [Unknown]
  - Anal inflammation [Unknown]
  - Erection increased [Unknown]
